FAERS Safety Report 20961955 (Version 3)
Quarter: 2022Q3

REPORT INFORMATION
  Report Type: Report from Study
  Country: NL (occurrence: NL)
  Receive Date: 20220615
  Receipt Date: 20220708
  Transmission Date: 20221027
  Serious: Yes (Hospitalization, Other)
  Sender: FDA-Public Use
  Company Number: NL-JNJFOC-20220556088

PATIENT
  Age: 7 Decade
  Sex: Male
  Weight: 86 kg

DRUGS (10)
  1. SILDENAFIL CITRATE [Suspect]
     Active Substance: SILDENAFIL CITRATE
     Indication: Pulmonary hypertension
     Dosage: 20 MG, TABLET
     Route: 048
     Dates: start: 20210809, end: 20210812
  2. SILDENAFIL CITRATE [Suspect]
     Active Substance: SILDENAFIL CITRATE
     Dosage: 40 MG, TABLET
     Route: 048
     Dates: start: 20210812, end: 20210815
  3. SILDENAFIL CITRATE [Suspect]
     Active Substance: SILDENAFIL CITRATE
     Dosage: 60 MG, TABLET
     Route: 048
     Dates: start: 20210815
  4. MACITENTAN [Suspect]
     Active Substance: MACITENTAN
     Indication: Pulmonary arterial hypertension
     Dosage: 10 MG
     Route: 048
     Dates: start: 20210718
  5. IRBESARTAN [Concomitant]
     Active Substance: IRBESARTAN
     Dosage: UNK
     Route: 048
     Dates: start: 20220602, end: 20220602
  6. FUROSEMIDE [Concomitant]
     Active Substance: FUROSEMIDE
     Indication: Pulmonary hypertension
     Dosage: UNK
     Route: 048
     Dates: start: 20210712, end: 20220602
  7. ACETAMINOPHEN [Concomitant]
     Active Substance: ACETAMINOPHEN
     Indication: Pain
     Dosage: UNK
     Route: 048
     Dates: start: 20220523, end: 20220528
  8. ACETAMINOPHEN [Concomitant]
     Active Substance: ACETAMINOPHEN
     Dosage: UNK
     Route: 048
     Dates: start: 20220602, end: 20220616
  9. LIDOCAINE [Concomitant]
     Active Substance: LIDOCAINE
     Indication: Anaesthesia
     Dosage: UNK
     Route: 058
     Dates: start: 20220602, end: 20220603
  10. FLUIMUCIL [Concomitant]
     Active Substance: ACETYLCYSTEINE
     Indication: Productive cough
     Route: 055

REACTIONS (10)
  - Hypotension [Recovered/Resolved]
  - Atrial flutter [Recovered/Resolved]
  - C-reactive protein increased [Recovering/Resolving]
  - Pulmonary embolism [Recovered/Resolved]
  - Cardiac tamponade [Recovered/Resolved]
  - Respiratory failure [Recovered/Resolved]
  - Right ventricular failure [Recovered/Resolved]
  - Pneumonia [Unknown]
  - Hypokalaemia [Recovered/Resolved]
  - Acute kidney injury [Unknown]

NARRATIVE: CASE EVENT DATE: 20220521
